FAERS Safety Report 24429192 (Version 1)
Quarter: 2024Q4

REPORT INFORMATION
  Report Type: Spontaneous
  Country: ES (occurrence: ES)
  Receive Date: 20241011
  Receipt Date: 20241011
  Transmission Date: 20250114
  Serious: Yes (Hospitalization, Other)
  Sender: TEVA
  Company Number: None

PATIENT
  Age: 92 Year
  Sex: Female
  Weight: 60 kg

DRUGS (1)
  1. QUETIAPINE [Suspect]
     Active Substance: QUETIAPINE
     Indication: Product used for unknown indication
     Dosage: 1
     Route: 048
     Dates: start: 20220525, end: 20220801

REACTIONS (3)
  - Dizziness [Unknown]
  - Inflammation [Recovering/Resolving]
  - Erythema [Not Recovered/Not Resolved]
